FAERS Safety Report 20533271 (Version 2)
Quarter: 2022Q4

REPORT INFORMATION
  Report Type: Report from Study
  Country: US (occurrence: US)
  Receive Date: 20220301
  Receipt Date: 20221025
  Transmission Date: 20230112
  Serious: Yes (Other)
  Sender: FDA-Public Use
  Company Number: US-BRISTOL-MYERS SQUIBB COMPANY-BMS-2022-026998

PATIENT
  Sex: Female
  Weight: 76.644 kg

DRUGS (8)
  1. ABATACEPT [Suspect]
     Active Substance: ABATACEPT
     Indication: Rheumatoid arthritis
     Dosage: 125 MG/ML, ONCE A WEEK
     Route: 058
     Dates: start: 202107
  2. ORENCIA [Suspect]
     Active Substance: ABATACEPT
     Indication: Rheumatoid arthritis
     Dosage: UNK
     Route: 042
     Dates: start: 202101
  3. OMEPRAZOLE [Concomitant]
     Active Substance: OMEPRAZOLE
     Indication: Product used for unknown indication
     Dosage: 40MG IN MORNING
     Route: 065
  4. MSM [METHYLSULFONYLMETHANE] [Concomitant]
     Indication: Pain
     Dosage: AS NEEDED (LEMON, FRANKINCENSE, ROSEMARY, LAVENDER)
     Route: 065
  5. ZYRTEC [Concomitant]
     Active Substance: CETIRIZINE HYDROCHLORIDE
     Indication: Product used for unknown indication
     Dosage: UNK
     Route: 065
  6. LOSARTAN [Concomitant]
     Active Substance: LOSARTAN
     Indication: Product used for unknown indication
     Dosage: SMALLEST ONE CUT IN HALF, 25MG CUT IN HALF AS NEEDED
     Route: 065
  7. PLAQUENIL [Concomitant]
     Active Substance: HYDROXYCHLOROQUINE SULFATE
     Indication: Product used for unknown indication
     Dosage: UNK UNK, BID
     Route: 065
  8. PLAQUENIL [Concomitant]
     Active Substance: HYDROXYCHLOROQUINE SULFATE
     Dosage: 200 DECREASED TO ONCE A DAY FROM TWICE A DAY AFTER EYE ISSUES
     Route: 065

REACTIONS (12)
  - Retinal detachment [Unknown]
  - Corneal abrasion [Unknown]
  - Hypertension [Unknown]
  - Malaise [Unknown]
  - Throat irritation [Recovering/Resolving]
  - Injection site irritation [Unknown]
  - Injection site pruritus [Recovered/Resolved]
  - Injection site mass [Unknown]
  - Drug hypersensitivity [Unknown]
  - Cough [Recovering/Resolving]
  - Feeling abnormal [Not Recovered/Not Resolved]
  - Fatigue [Not Recovered/Not Resolved]

NARRATIVE: CASE EVENT DATE: 20210801
